FAERS Safety Report 8175747-4 (Version None)
Quarter: 2012Q1

REPORT INFORMATION
  Report Type: 
  Country: None (occurrence: None)
  Receive Date: 20120228
  Receipt Date: 20120228
  Transmission Date: 20120608
  Serious: Yes (Hospitalization)
  Sender: FDA-Public Use
  Company Number: None

PATIENT
  Age: 60 Year
  Sex: Male
  Weight: 69.5 kg

DRUGS (1)
  1. PHENYTOIN [Suspect]
     Indication: CONVULSION
     Dosage: 300 MG BID PO
     Route: 048
     Dates: start: 20060829, end: 20120223

REACTIONS (2)
  - LETHARGY [None]
  - ANTICONVULSANT DRUG LEVEL INCREASED [None]
